FAERS Safety Report 9648262 (Version 2)
Quarter: 2013Q4

REPORT INFORMATION
  Report Type: Report from Study
  Country: NL (occurrence: NL)
  Receive Date: 20131028
  Receipt Date: 20131104
  Transmission Date: 20140711
  Serious: Yes (Other)
  Sender: FDA-Public Use
  Company Number: NL-PFIZER INC-2013305162

PATIENT
  Age: 73 Year
  Sex: Female

DRUGS (7)
  1. METFORMIN PFIZER [Suspect]
     Dosage: UNK
     Route: 065
  2. PANTOPRAZOLE [Suspect]
     Dosage: UNK
     Route: 065
  3. LORAZEPAM [Suspect]
     Dosage: UNK
     Route: 065
  4. CLOMIPRAMINE [Suspect]
     Indication: ANTIDEPRESSANT THERAPY
     Dosage: 175 MG, DAILY
     Route: 065
  5. ENALAPRIL [Suspect]
     Dosage: UNK
     Route: 065
  6. FLUPENTIXOL [Suspect]
     Dosage: UNK
     Route: 065
  7. HYDROCHLOROTHIAZIDE [Suspect]
     Dosage: UNK

REACTIONS (2)
  - Hyponatraemia [Unknown]
  - Hypovolaemia [Unknown]
